FAERS Safety Report 6818460-5 (Version None)
Quarter: 2010Q3

REPORT INFORMATION
  Report Type: 
  Country: None (occurrence: None)
  Receive Date: 20100706
  Receipt Date: 20080429
  Transmission Date: 20110219
  Serious: No
  Sender: FDA-Public Use
  Company Number: US-PFIZER INC-2008038310

PATIENT
  Weight: 54.43 kg

DRUGS (4)
  1. ZITHROMAX (CAPS) [Suspect]
     Indication: LOWER RESPIRATORY TRACT INFECTION
     Route: 048
     Dates: start: 20080119, end: 20080123
  2. ZITHROMAX (CAPS) [Suspect]
     Indication: PYREXIA
  3. ZITHROMAX (CAPS) [Suspect]
     Indication: COUGH
  4. ADALIMUMAB [Suspect]
     Indication: CROHN'S DISEASE
     Route: 058
     Dates: start: 20071129, end: 20080119

REACTIONS (1)
  - RASH [None]
